FAERS Safety Report 22353100 (Version 1)
Quarter: 2023Q2

REPORT INFORMATION
  Report Type: Spontaneous
  Country: US (occurrence: US)
  Receive Date: 20230523
  Receipt Date: 20230523
  Transmission Date: 20230722
  Serious: Yes (Hospitalization)
  Sender: FDA-Public Use
  Company Number: US-BRISTOL-MYERS SQUIBB COMPANY-2023-068891

PATIENT
  Age: 68 Year
  Sex: Male

DRUGS (1)
  1. POMALYST [Suspect]
     Active Substance: POMALIDOMIDE
     Indication: Arthralgia
     Dosage: TAKE 1 CAPSULE (2 MG TOTAL) BY MOUTH ONCE DAILY
     Route: 048
     Dates: start: 20230510

REACTIONS (2)
  - Adverse event [Not Recovered/Not Resolved]
  - Off label use [Unknown]
